FAERS Safety Report 20559438 (Version 1)
Quarter: 2022Q1

REPORT INFORMATION
  Report Type: Spontaneous
  Country: CA (occurrence: CA)
  Receive Date: 20220307
  Receipt Date: 20220307
  Transmission Date: 20220423
  Serious: Yes (Other)
  Sender: FDA-Public Use
  Company Number: CA-PFIZER INC-202200315095

PATIENT
  Age: 66 Year
  Sex: Male

DRUGS (4)
  1. BOSUTINIB [Suspect]
     Active Substance: BOSUTINIB
     Indication: Chronic myeloid leukaemia
     Dosage: UNK
     Route: 065
  2. DASATINIB [Suspect]
     Active Substance: DASATINIB
     Indication: Chronic myeloid leukaemia
     Dosage: UNK
     Route: 065
  3. IMATINIB [Suspect]
     Active Substance: IMATINIB
     Indication: Chronic myeloid leukaemia
     Dosage: 800 MG
     Route: 065
  4. IMATINIB [Suspect]
     Active Substance: IMATINIB
     Dosage: 400 MG
     Route: 065

REACTIONS (9)
  - Cardiac failure [Unknown]
  - Drug intolerance [Unknown]
  - Hypertension [Unknown]
  - Myocardial infarction [Unknown]
  - Obesity [Unknown]
  - Pleural effusion [Unknown]
  - Pulmonary hypertension [Unknown]
  - Sleep apnoea syndrome [Unknown]
  - Neoplasm progression [Unknown]
